FAERS Safety Report 8231750-7 (Version None)
Quarter: 2012Q1

REPORT INFORMATION
  Report Type: 
  Country: None (occurrence: None)
  Receive Date: 20120323
  Receipt Date: 20120315
  Transmission Date: 20120608
  Serious: Yes (Hospitalization, Other)
  Sender: FDA-Public Use
  Company Number: US-BRISTOL-MYERS SQUIBB COMPANY-12854709

PATIENT
  Age: 49 Year
  Sex: Male
  Weight: 59 kg

DRUGS (19)
  1. VISTARIL [Concomitant]
  2. ABILIFY [Suspect]
     Indication: ABNORMAL BEHAVIOUR
     Dosage: DOSE INCREASED TO 20 MG,REDUCED
     Route: 048
     Dates: start: 20040101
  3. PROPRANOLOL [Concomitant]
  4. VITAMIN E [Concomitant]
  5. ZOCOR [Concomitant]
  6. KLONOPIN [Concomitant]
  7. GLUCOTROL [Concomitant]
  8. VASOTEC [Concomitant]
  9. SIMVASTATIN [Concomitant]
  10. DEPAKOTE [Concomitant]
  11. BACTRIM [Concomitant]
  12. VISTARIL [Concomitant]
  13. FLOMAX [Concomitant]
  14. ABILIFY [Suspect]
     Indication: NERVOUSNESS
     Dosage: DOSE INCREASED TO 20 MG,REDUCED
     Route: 048
     Dates: start: 20040101
  15. ABILIFY [Suspect]
     Indication: SCHIZOPHRENIA, PARANOID TYPE
     Dosage: DOSE INCREASED TO 20 MG,REDUCED
     Route: 048
     Dates: start: 20040101
  16. GLUCOPHAGE [Concomitant]
     Dosage: GLUCOPHAGE XR
     Dates: start: 20040101
  17. LISINOPRIL [Concomitant]
  18. ABILIFY [Suspect]
     Indication: ANXIETY
     Dosage: DOSE INCREASED TO 20 MG,REDUCED
     Route: 048
     Dates: start: 20040101
  19. LISINOPRIL [Concomitant]

REACTIONS (7)
  - TREMOR [None]
  - CHOLECYSTITIS INFECTIVE [None]
  - LYMPHADENOPATHY [None]
  - URINARY TRACT INFECTION [None]
  - TARDIVE DYSKINESIA [None]
  - CIRCULATORY COLLAPSE [None]
  - WEIGHT DECREASED [None]
